FAERS Safety Report 10062646 (Version 1)
Quarter: 2014Q2

REPORT INFORMATION
  Report Type: Spontaneous
  Country: US (occurrence: US)
  Receive Date: 20140407
  Receipt Date: 20140407
  Transmission Date: 20141212
  Serious: Yes (Death)
  Sender: FDA-Public Use
  Company Number: US-FRI-1000066063

PATIENT
  Age: 78 Year
  Sex: Female

DRUGS (3)
  1. NAMENDA XR [Suspect]
     Indication: DEMENTIA
     Dosage: 28MG
     Dates: start: 201312, end: 20140217
  2. DONEPEZIL [Concomitant]
  3. ATORVASTATIN [Concomitant]

REACTIONS (1)
  - Death [Fatal]
